FAERS Safety Report 7234103-3 (Version None)
Quarter: 2011Q1

REPORT INFORMATION
  Report Type: 
  Country: None (occurrence: None)
  Receive Date: 20110119
  Receipt Date: 20100708
  Transmission Date: 20110831
  Serious: No
  Sender: FDA-Public Use
  Company Number: US-PFIZER INC-2010085641

PATIENT
  Sex: Female

DRUGS (5)
  1. CAFFEINE [Concomitant]
     Indication: BRADYCARDIA
  2. PROSTIN VR PEDIATRIC [Suspect]
     Dosage: 500 UG/ML, UNK
     Dates: start: 20100701, end: 20100701
  3. RANITIDINE [Concomitant]
     Dosage: 0.92 MG, UNK
     Route: 042
     Dates: start: 20100524
  4. DIFLUCAN [Concomitant]
     Indication: PROPHYLAXIS
     Dosage: 5 MG, 2X/WEEK
     Route: 042
     Dates: start: 20100524
  5. CAFFEINE [Concomitant]
     Indication: APNOEA
     Dosage: 9 MG, 1X/DAY
     Route: 042

REACTIONS (1)
  - WRONG DRUG ADMINISTERED [None]
